FAERS Safety Report 21928543 (Version 1)
Quarter: 2023Q1

REPORT INFORMATION
  Report Type: Spontaneous
  Country: US (occurrence: US)
  Receive Date: 20230130
  Receipt Date: 20230130
  Transmission Date: 20230418
  Serious: No
  Sender: FDA-Public Use
  Company Number: US-drreddys-SPO/USA/23/0159640

PATIENT
  Age: 47 Year
  Sex: Male

DRUGS (7)
  1. LENALIDOMIDE [Suspect]
     Active Substance: LENALIDOMIDE
     Indication: Plasma cell myeloma
     Dosage: FOR 14 DAYS OF A 21 DAY CYCLE
     Route: 048
     Dates: start: 20221026
  2. OMEPRAZOLE [Concomitant]
     Active Substance: OMEPRAZOLE
     Indication: Product used for unknown indication
  3. AMLODIPINE B TAB 10MG [Concomitant]
     Indication: Product used for unknown indication
  4. ASPIRIN TAB 325MG [Concomitant]
     Indication: Product used for unknown indication
  5. CALCIUM TAB 500MG [Concomitant]
     Indication: Product used for unknown indication
  6. VALACYCLOVIR TAB 500MG [Concomitant]
     Indication: Product used for unknown indication
  7. VITAMIN D TAB 25 MCG, 1000 [Concomitant]
     Indication: Product used for unknown indication
     Dosage: 25 MCG(1000

REACTIONS (2)
  - Product administration interrupted [Unknown]
  - Product use issue [Unknown]

NARRATIVE: CASE EVENT DATE: 20221026
